FAERS Safety Report 23325974 (Version 2)
Quarter: 2024Q1

REPORT INFORMATION
  Report Type: Spontaneous
  Country: None (occurrence: JP)
  Receive Date: 20231221
  Receipt Date: 20240102
  Transmission Date: 20240409
  Serious: Yes (Other)
  Sender: FDA-Public Use
  Company Number: JP-Ascend Therapeutics US, LLC-2149619

PATIENT
  Age: 56 Year
  Sex: Female
  Weight: 78.8 kg

DRUGS (2)
  1. ESTROGEL [Suspect]
     Active Substance: ESTRADIOL
     Indication: Product used for unknown indication
     Route: 062
  2. ESTROGEL [Suspect]
     Active Substance: ESTRADIOL
     Route: 062

REACTIONS (1)
  - Small intestine carcinoma [Unknown]
